FAERS Safety Report 5272158-6 (Version None)
Quarter: 2007Q1

REPORT INFORMATION
  Report Type: 
  Country: None (occurrence: None)
  Receive Date: 20070320
  Receipt Date: 20070320
  Transmission Date: 20070707
  Serious: Yes (Other)
  Sender: FDA-Public Use
  Company Number: None

PATIENT
  Sex: Female

DRUGS (11)
  1. REVLIMID [Suspect]
     Indication: MULTIPLE MYELOMA
     Dosage: 5MG DAILY 21D/28D PO
     Route: 048
  2. PROCRIT [Concomitant]
  3. ENDOCET [Concomitant]
  4. KLOR-CON [Concomitant]
  5. FUROSEMIDE [Concomitant]
  6. METHADONE HCL [Concomitant]
  7. PROMETHAZINE/CODEINE [Concomitant]
  8. DECADRON [Concomitant]
  9. METOPROLOL SUCCINATE [Concomitant]
  10. BUSPIRONE HCL [Concomitant]
  11. DOXEPIN HCL [Concomitant]

REACTIONS (1)
  - NEUTROPENIA [None]
